FAERS Safety Report 4479422-9 (Version None)
Quarter: 2004Q4

REPORT INFORMATION
  Report Type: 
  Country: None (occurrence: None)
  Receive Date: 20041015
  Receipt Date: 20040928
  Transmission Date: 20050328
  Serious: Yes (Other)
  Sender: FDA-Public Use
  Company Number: USA040876223

PATIENT
  Age: 73 Year
  Sex: Female
  Weight: 51 kg

DRUGS (10)
  1. FORTEO [Suspect]
     Indication: OSTEOPOROSIS
     Dosage: 20 UG DAY
     Dates: start: 20040819, end: 20040901
  2. CITRACAL PLUS [Concomitant]
  3. METAMUCIL-2 [Concomitant]
  4. ZANTAC [Concomitant]
  5. XANAX (ALPRAZOLAM DUM) [Concomitant]
  6. ACIDOPHILUS [Concomitant]
  7. BETA BLOCKER [Concomitant]
  8. CALCIUM [Concomitant]
  9. VITAMIN D [Concomitant]
  10. MAGNESIUM (MAGNESIUM ASPARTATE) [Concomitant]

REACTIONS (27)
  - ABDOMINAL PAIN UPPER [None]
  - ACCIDENTAL NEEDLE STICK [None]
  - ACTIVITIES OF DAILY LIVING IMPAIRED [None]
  - ARTHRALGIA [None]
  - ASTHENIA [None]
  - BACK DISORDER [None]
  - BLOOD GLUCOSE DECREASED [None]
  - CARDIAC FIBRILLATION [None]
  - DEPRESSED MOOD [None]
  - DIARRHOEA [None]
  - DIZZINESS [None]
  - FATIGUE [None]
  - FEELING ABNORMAL [None]
  - HEADACHE [None]
  - INJECTION SITE HAEMORRHAGE [None]
  - MALAISE [None]
  - MEDICAL DEVICE COMPLICATION [None]
  - MUSCLE CRAMP [None]
  - MUSCULAR WEAKNESS [None]
  - NASOPHARYNGITIS [None]
  - OSTEOARTHRITIS [None]
  - PAIN IN EXTREMITY [None]
  - PALPITATIONS [None]
  - PHARMACEUTICAL PRODUCT COMPLAINT [None]
  - SOMNOLENCE [None]
  - STRESS SYMPTOMS [None]
  - TREATMENT NONCOMPLIANCE [None]
